FAERS Safety Report 23747814 (Version 2)
Quarter: 2024Q3

REPORT INFORMATION
  Report Type: Other
  Country: DO (occurrence: DO)
  Receive Date: 20240416
  Receipt Date: 20240917
  Transmission Date: 20241017
  Serious: Yes (Death, Hospitalization, Other)
  Sender: TOLMAR
  Company Number: DO-TOLMAR, INC.-24DO047240

PATIENT
  Age: 87 Year
  Sex: Male

DRUGS (4)
  1. ELIGARD [Suspect]
     Active Substance: LEUPROLIDE ACETATE
     Indication: Prostate cancer
     Dosage: 22.5 MILLIGRAM, Q 3 MONTH
     Route: 058
     Dates: start: 20231106
  2. ELIGARD [Suspect]
     Active Substance: LEUPROLIDE ACETATE
     Dosage: 22.5 MILLIGRAM, Q 3 MONTH
     Route: 058
     Dates: start: 20220807
  3. ELIGARD [Suspect]
     Active Substance: LEUPROLIDE ACETATE
     Indication: Prostate cancer
     Dosage: UNK
  4. UNSPECIFIED INGREDIENT [Concomitant]
     Active Substance: UNSPECIFIED INGREDIENT
     Indication: Prostate cancer

REACTIONS (16)
  - Cardiac arrest [Fatal]
  - Pneumonia [Recovered/Resolved]
  - Upper limb fracture [Recovered/Resolved]
  - Clavicle fracture [Recovered/Resolved]
  - Shoulder fracture [Recovered/Resolved]
  - Fall [Recovered/Resolved with Sequelae]
  - Dehydration [Unknown]
  - Critical illness [Unknown]
  - Vomiting [Unknown]
  - Hypotension [Unknown]
  - Intentional dose omission [Unknown]
  - Blood sodium increased [Unknown]
  - Blood pressure increased [Recovered/Resolved]
  - Blood sodium decreased [Unknown]
  - Haemoglobin decreased [Unknown]
  - Dizziness [Not Recovered/Not Resolved]

NARRATIVE: CASE EVENT DATE: 20240123
